FAERS Safety Report 20033581 (Version 3)
Quarter: 2021Q4

REPORT INFORMATION
  Report Type: Report from Study
  Country: US (occurrence: US)
  Receive Date: 20211104
  Receipt Date: 20211220
  Transmission Date: 20220304
  Serious: Yes (Hospitalization)
  Sender: FDA-Public Use
  Company Number: US-JNJFOC-20211058871

PATIENT
  Age: 19 Year
  Sex: Female

DRUGS (2)
  1. SPRAVATO [Suspect]
     Active Substance: ESKETAMINE
     Indication: Depression
     Dosage: 84 MG, TOTAL OF 4 DOSES
     Dates: start: 20210915, end: 20210925
  2. SPRAVATO [Suspect]
     Active Substance: ESKETAMINE
     Dosage: 84 MG, TOTAL OF ONE DOSE
     Dates: start: 20210928, end: 20210928

REACTIONS (2)
  - Decreased appetite [Not Recovered/Not Resolved]
  - Drug ineffective [Unknown]
